FAERS Safety Report 7063663-0 (Version None)
Quarter: 2010Q4

REPORT INFORMATION
  Report Type: 
  Country: None (occurrence: None)
  Receive Date: 20101026
  Receipt Date: 20100709
  Transmission Date: 20110411
  Serious: No
  Sender: FDA-Public Use
  Company Number: US-ABBOTT-10P-163-0657624-00

PATIENT
  Sex: Female
  Weight: 63.56 kg

DRUGS (3)
  1. LUPRON DEPOT [Suspect]
     Indication: ENDOMETRIOSIS
     Dates: start: 20100201
  2. ACTIVELLA [Concomitant]
     Indication: HORMONE REPLACEMENT THERAPY
     Dates: start: 20100201, end: 20100501
  3. NORETHINDRONE ACETATE [Concomitant]
     Indication: HORMONE REPLACEMENT THERAPY
     Dates: start: 20100501

REACTIONS (3)
  - DEPRESSION [None]
  - MOOD SWINGS [None]
  - PANIC ATTACK [None]
